FAERS Safety Report 23558241 (Version 3)
Quarter: 2025Q1

REPORT INFORMATION
  Report Type: Spontaneous
  Country: PT (occurrence: PT)
  Receive Date: 20240223
  Receipt Date: 20250219
  Transmission Date: 20250408
  Serious: Yes (Life-Threatening, Other)
  Sender: ACCORD
  Company Number: PT-Accord-407580

PATIENT
  Age: 53 Year
  Sex: Female

DRUGS (15)
  1. LETROZOLE [Suspect]
     Active Substance: LETROZOLE
     Indication: Invasive lobular breast carcinoma
     Dosage: SYSTEMIC
     Dates: start: 202112, end: 202201
  2. ABEMACICLIB [Suspect]
     Active Substance: ABEMACICLIB
     Indication: Invasive lobular breast carcinoma
     Dosage: SYSTEMIC
     Dates: start: 202112, end: 202201
  3. BUPROPION HYDROCHLORIDE [Concomitant]
     Active Substance: BUPROPION HYDROCHLORIDE
  4. ROSUVASTATIN [Concomitant]
     Active Substance: ROSUVASTATIN
  5. MONTELUKAST [Concomitant]
     Active Substance: MONTELUKAST
  6. LORAZEPAM [Concomitant]
     Active Substance: LORAZEPAM
  7. PAROXETINE [Concomitant]
     Active Substance: PAROXETINE
  8. CANDESARTAN [Concomitant]
     Active Substance: CANDESARTAN
  9. MIRTAZAPINE [Concomitant]
     Active Substance: MIRTAZAPINE
  10. ABEMACICLIB [Suspect]
     Active Substance: ABEMACICLIB
     Indication: Breast cancer metastatic
     Dosage: SYSTEMIC
     Dates: start: 202112, end: 202201
  11. ABEMACICLIB [Suspect]
     Active Substance: ABEMACICLIB
     Indication: Metastases to eye
     Dosage: SYSTEMIC
     Dates: start: 202112, end: 202201
  12. ABEMACICLIB [Suspect]
     Active Substance: ABEMACICLIB
     Indication: Hormone receptor positive HER2 negative breast cancer
     Dosage: SYSTEMIC
     Dates: start: 202112, end: 202201
  13. LETROZOLE [Suspect]
     Active Substance: LETROZOLE
     Indication: Metastases to eye
     Dosage: SYSTEMIC
     Dates: start: 202112, end: 202201
  14. LETROZOLE [Suspect]
     Active Substance: LETROZOLE
     Indication: Breast cancer metastatic
     Dosage: SYSTEMIC
     Dates: start: 202112, end: 202201
  15. LETROZOLE [Suspect]
     Active Substance: LETROZOLE
     Indication: Hormone receptor positive HER2 negative breast cancer
     Dosage: SYSTEMIC
     Dates: start: 202112, end: 202201

REACTIONS (3)
  - Blood creatinine increased [Recovering/Resolving]
  - Drug-induced liver injury [Recovering/Resolving]
  - Diarrhoea [Recovering/Resolving]

NARRATIVE: CASE EVENT DATE: 20220101
